FAERS Safety Report 5037031-7 (Version None)
Quarter: 2006Q2

REPORT INFORMATION
  Report Type: 
  Country: None (occurrence: None)
  Receive Date: 20060601
  Receipt Date: 20050404
  Transmission Date: 20061013
  Serious: Yes (Other)
  Sender: FDA-Public Use
  Company Number: 2005_000020

PATIENT
  Age: 33 Year
  Sex: Female

DRUGS (2)
  1. DEPOCYT [Suspect]
     Indication: DISEASE RECURRENCE
     Dosage: 50 MG; QOW; INTH
     Route: 037
  2. DEPOCYT [Suspect]
     Indication: MENINGEAL DISORDER
     Dosage: 50 MG; QOW; INTH
     Route: 037

REACTIONS (2)
  - BACK PAIN [None]
  - PETIT MAL EPILEPSY [None]
